FAERS Safety Report 13303944 (Version 1)
Quarter: 2017Q1

REPORT INFORMATION
  Report Type: Not Available
  Country: US (occurrence: US)
  Receive Date: 20170307
  Receipt Date: 20170307
  Transmission Date: 20170428
  Serious: Yes (Other)
  Sender: FDA-Public Use
  Company Number: US--2017-US-000021

PATIENT
  Age: 50 Year
  Sex: Male

DRUGS (3)
  1. AMLODIPINE BESYLATE BRAND UNSPECIFIED (VIVIMED) [Suspect]
     Active Substance: AMLODIPINE BESYLATE
     Indication: SUICIDE ATTEMPT
  2. HYDROCHLOROTHIAZIDE. [Suspect]
     Active Substance: HYDROCHLOROTHIAZIDE
  3. LISINOPRIL. [Suspect]
     Active Substance: LISINOPRIL

REACTIONS (9)
  - Suicide attempt [Recovered/Resolved]
  - Shock [Recovered/Resolved]
  - Continuous haemodiafiltration [None]
  - Staphylococcal bacteraemia [None]
  - Pericardial effusion [None]
  - Renal failure [None]
  - Overdose [Recovered/Resolved]
  - Intentional overdose [None]
  - Respiratory failure [Recovered/Resolved]
